FAERS Safety Report 17231806 (Version 1)
Quarter: 2020Q1

REPORT INFORMATION
  Report Type: Spontaneous
  Country: CN (occurrence: CN)
  Receive Date: 20200103
  Receipt Date: 20200103
  Transmission Date: 20200409
  Serious: Yes (Hospitalization)
  Sender: FDA-Public Use
  Company Number: CN-009507513-2001CHN000612

PATIENT
  Age: 70 Year
  Sex: Male

DRUGS (2)
  1. TIENAM [Suspect]
     Active Substance: CILASTATIN SODIUM\IMIPENEM
     Indication: ANTI-INFECTIVE THERAPY
     Dosage: 1 GRAM, Q8H
     Route: 041
     Dates: start: 20191214, end: 20191215
  2. PIPERACILLIN AND TAZOBACTAM [Concomitant]
     Active Substance: PIPERACILLIN SODIUM\TAZOBACTAM SODIUM
     Indication: ANTI-INFECTIVE THERAPY
     Dosage: 4.5 GRAM, Q8H
     Route: 041
     Dates: start: 20191213, end: 20191214

REACTIONS (1)
  - Muscle twitching [Recovering/Resolving]

NARRATIVE: CASE EVENT DATE: 20191215
